FAERS Safety Report 19830783 (Version 7)
Quarter: 2022Q1

REPORT INFORMATION
  Report Type: Report from Study
  Country: US (occurrence: US)
  Receive Date: 20210915
  Receipt Date: 20220118
  Transmission Date: 20220423
  Serious: Yes (Other)
  Sender: FDA-Public Use
  Company Number: US-NOVARTISPH-NVSC2021US208648

PATIENT
  Sex: Female

DRUGS (2)
  1. PIQRAY [Suspect]
     Active Substance: ALPELISIB
     Indication: Product used for unknown indication
     Dosage: UNK
     Route: 048
  2. PIQRAY [Suspect]
     Active Substance: ALPELISIB
     Dosage: 150 MG, QD
     Route: 048

REACTIONS (13)
  - Neuropathy peripheral [Unknown]
  - Dizziness [Unknown]
  - Somnolence [Unknown]
  - Eating disorder [Unknown]
  - Visual impairment [Unknown]
  - Insomnia [Unknown]
  - Fatigue [Unknown]
  - Blood glucose increased [Unknown]
  - Pruritus [Unknown]
  - Dry mouth [Unknown]
  - Weight decreased [Unknown]
  - Drug ineffective [Unknown]
  - Product dose omission issue [Unknown]
